FAERS Safety Report 19894081 (Version 6)
Quarter: 2022Q4

REPORT INFORMATION
  Report Type: Report from Study
  Country: MX (occurrence: MX)
  Receive Date: 20210929
  Receipt Date: 20221215
  Transmission Date: 20230112
  Serious: Yes (Hospitalization, Other)
  Sender: FDA-Public Use
  Company Number: MX-NOVARTISPH-NVSC2021MX159944

PATIENT
  Age: 57 Year
  Sex: Female
  Weight: 61 kg

DRUGS (7)
  1. TASIGNA [Suspect]
     Active Substance: NILOTINIB
     Indication: Chronic myeloid leukaemia
     Dosage: 600 MG
     Route: 048
     Dates: start: 201912
  2. TASIGNA [Suspect]
     Active Substance: NILOTINIB
     Dosage: 800 MG
     Route: 048
     Dates: start: 202105
  3. TASIGNA [Suspect]
     Active Substance: NILOTINIB
     Dosage: 800 MG, QD (FOUR MONTHS AGO)
     Route: 065
  4. TASIGNA [Suspect]
     Active Substance: NILOTINIB
     Dosage: 800 MG, QD
     Route: 048
  5. TASIGNA [Suspect]
     Active Substance: NILOTINIB
     Dosage: UNK
     Route: 048
  6. OMEPRAZOLE [Concomitant]
     Active Substance: OMEPRAZOLE
     Indication: Abdominal pain upper
     Dosage: 1 DF, QD
     Route: 048
     Dates: start: 20210830
  7. TAMOXIFEN [Concomitant]
     Active Substance: TAMOXIFEN
     Indication: Product used for unknown indication
     Dosage: UNK
     Route: 065

REACTIONS (38)
  - Anaemia [Unknown]
  - Nephrolithiasis [Not Recovered/Not Resolved]
  - Renal pain [Unknown]
  - Breast cancer [Unknown]
  - Second primary malignancy [Unknown]
  - Inappropriate schedule of product administration [Unknown]
  - Vomiting [Recovered/Resolved]
  - Nausea [Recovered/Resolved]
  - Nausea [Not Recovered/Not Resolved]
  - Toothache [Unknown]
  - Limb injury [Unknown]
  - Nervousness [Unknown]
  - Crying [Unknown]
  - Stress [Unknown]
  - Blood glucose abnormal [Unknown]
  - Urinary tract infection [Unknown]
  - Alopecia [Unknown]
  - Fear [Unknown]
  - Somnolence [Recovering/Resolving]
  - Gastric dilatation [Not Recovered/Not Resolved]
  - Renal disorder [Unknown]
  - Peripheral swelling [Unknown]
  - Vein disorder [Unknown]
  - Joint swelling [Unknown]
  - Uterine disorder [Unknown]
  - Ill-defined disorder [Unknown]
  - Influenza [Recovering/Resolving]
  - Oropharyngeal pain [Recovering/Resolving]
  - Fatigue [Recovering/Resolving]
  - Blood cholesterol increased [Unknown]
  - Tremor [Recovered/Resolved]
  - Nasopharyngitis [Recovered/Resolved]
  - Decreased appetite [Unknown]
  - Weight decreased [Unknown]
  - Weight increased [Unknown]
  - Abdominal discomfort [Recovering/Resolving]
  - Anxiety [Unknown]
  - Arthralgia [Unknown]

NARRATIVE: CASE EVENT DATE: 20210501
